FAERS Safety Report 10244425 (Version 1)
Quarter: 2014Q2

REPORT INFORMATION
  Report Type: Spontaneous
  Country: BR (occurrence: BR)
  Receive Date: 20140618
  Receipt Date: 20140618
  Transmission Date: 20141212
  Serious: Yes (Other)
  Sender: FDA-Public Use
  Company Number: BR-ABBVIE-14P-020-1246482-00

PATIENT
  Age: 29 Year
  Sex: Female
  Weight: 47 kg

DRUGS (2)
  1. HUMIRA [Suspect]
     Indication: ANKYLOSING SPONDYLITIS
     Route: 058
     Dates: start: 20140331, end: 20140528
  2. KETOPROFEN [Concomitant]
     Indication: PAIN
     Route: 048
     Dates: start: 20131215

REACTIONS (16)
  - Epilepsy [Unknown]
  - Nodule [Not Recovered/Not Resolved]
  - Bone disorder [Not Recovered/Not Resolved]
  - Bone pain [Not Recovered/Not Resolved]
  - Pain [Not Recovered/Not Resolved]
  - Menorrhagia [Not Recovered/Not Resolved]
  - Abdominal pain [Not Recovered/Not Resolved]
  - Back pain [Not Recovered/Not Resolved]
  - Abdominal pain [Not Recovered/Not Resolved]
  - Polymenorrhoea [Not Recovered/Not Resolved]
  - Head discomfort [Recovering/Resolving]
  - Dizziness [Recovering/Resolving]
  - Labyrinthitis [Recovering/Resolving]
  - Nervous system disorder [Unknown]
  - Localised oedema [Unknown]
  - Cyst [Unknown]
